FAERS Safety Report 8250494-9 (Version None)
Quarter: 2012Q2

REPORT INFORMATION
  Report Type: 
  Country: None (occurrence: None)
  Receive Date: 20120402
  Receipt Date: 20120402
  Transmission Date: 20120825
  Serious: Yes (Other)
  Sender: FDA-Public Use
  Company Number: None

PATIENT
  Age: 49 Year
  Sex: Female
  Weight: 228 kg

DRUGS (1)
  1. EPOGEN [Suspect]
     Indication: RED BLOOD CELL COUNT DECREASED
     Dosage: 4400 UNITS
     Route: 041
     Dates: start: 20051201, end: 20120330

REACTIONS (3)
  - HEADACHE [None]
  - INCORRECT DOSE ADMINISTERED [None]
  - DRUG INEFFECTIVE [None]
